FAERS Safety Report 4306783-3 (Version None)
Quarter: 2004Q1

REPORT INFORMATION
  Report Type: 
  Country: None (occurrence: None)
  Receive Date: 20040225
  Receipt Date: 20040209
  Transmission Date: 20041129
  Serious: Yes (Other)
  Sender: FDA-Public Use
  Company Number: USA040258928

PATIENT
  Age: 79 Year
  Sex: Female

DRUGS (6)
  1. FORTEO [Suspect]
  2. SYNTHROID [Concomitant]
  3. NEXIUM [Concomitant]
  4. DILANTIN [Concomitant]
  5. ACCUPIL (QUINAPRIL HYDROCHLORIDE) [Concomitant]
  6. BEXTRA [Concomitant]

REACTIONS (3)
  - HEART RATE INCREASED [None]
  - MULTIPLE FRACTURES [None]
  - PHARMACEUTICAL PRODUCT COMPLAINT [None]
